FAERS Safety Report 9396141 (Version 2)
Quarter: 2013Q3

REPORT INFORMATION
  Report Type: Spontaneous
  Country: FR (occurrence: FR)
  Receive Date: 20130711
  Receipt Date: 20130726
  Transmission Date: 20140515
  Serious: Yes (Hospitalization)
  Sender: FDA-Public Use
  Company Number: FR-BAXTER-2013BAX025763

PATIENT
  Age: 71 Year
  Sex: Male

DRUGS (13)
  1. ENDOXAN 2000 MG, LYOPHILISAT POUR SOLUTION INJECTABLE [Suspect]
     Indication: SMALL CELL LUNG CANCER
     Route: 042
     Dates: start: 201210, end: 20130131
  2. ENDOXAN 2000 MG, LYOPHILISAT POUR SOLUTION INJECTABLE [Suspect]
     Route: 042
     Dates: start: 20130131, end: 20130131
  3. CELLTOP 100 MG/5 ML, SOLUTION INJECTABLE POUR PERFUSION [Suspect]
     Indication: SMALL CELL LUNG CANCER
     Route: 042
     Dates: start: 201112, end: 2012
  4. DOXORUBICINE [Suspect]
     Indication: SMALL CELL LUNG CANCER
     Route: 042
     Dates: start: 201210, end: 20130131
  5. DOXORUBICINE [Suspect]
     Route: 042
     Dates: start: 20120131, end: 20130131
  6. CAMPTO [Suspect]
     Indication: SMALL CELL LUNG CANCER
     Route: 042
     Dates: start: 201207, end: 201210
  7. CARBOPLATIN HOSPIRA [Suspect]
     Indication: SMALL CELL LUNG CANCER
     Route: 042
     Dates: start: 201207, end: 201210
  8. CISPLATYL [Suspect]
     Indication: SMALL CELL LUNG CANCER
     Route: 042
     Dates: start: 201112, end: 2012
  9. TRIATEC                            /00885601/ [Concomitant]
     Indication: PRODUCT USED FOR UNKNOWN INDICATION
     Dosage: 1.25 UNITS NOT PROVIDED
     Route: 065
  10. ASPEGIC                            /00002703/ [Concomitant]
     Indication: PRODUCT USED FOR UNKNOWN INDICATION
     Dosage: 250 UNITS NOT PROVIDED
     Route: 065
  11. TAHOR [Concomitant]
     Indication: PRODUCT USED FOR UNKNOWN INDICATION
     Dosage: 40 UNITS NOT PROVIDED
     Route: 065
  12. INEXIUM [Concomitant]
     Indication: PRODUCT USED FOR UNKNOWN INDICATION
     Dosage: 20 UNITS NOT PROVIDED
     Route: 065
  13. GLUCOPHAGE [Concomitant]
     Indication: PRODUCT USED FOR UNKNOWN INDICATION
     Dosage: 1000 UNITS NOT PROVIDED
     Route: 065

REACTIONS (1)
  - Progressive multifocal leukoencephalopathy [Recovering/Resolving]
